FAERS Safety Report 8100203-9 (Version None)
Quarter: 2012Q1

REPORT INFORMATION
  Report Type: 
  Country: None (occurrence: None)
  Receive Date: 20120129
  Receipt Date: 20111111
  Transmission Date: 20120608
  Serious: Yes (Hospitalization, Other)
  Sender: FDA-Public Use
  Company Number: US-ABBOTT-11P-163-0849561-00

PATIENT
  Sex: Female
  Weight: 88.53 kg

DRUGS (8)
  1. HUMIRA [Suspect]
     Dates: start: 20110802
  2. DIFLUNISAL [Concomitant]
     Indication: PRODUCT USED FOR UNKNOWN INDICATION
  3. HUMIRA [Suspect]
     Indication: RHEUMATOID ARTHRITIS
     Dates: start: 20090101, end: 20100701
  4. VICODIN [Concomitant]
     Indication: PRODUCT USED FOR UNKNOWN INDICATION
  5. METOPROLOL TARTRATE [Concomitant]
     Indication: PRODUCT USED FOR UNKNOWN INDICATION
  6. PREDNISONE TAB [Concomitant]
     Indication: PRODUCT USED FOR UNKNOWN INDICATION
  7. PREMARIN [Concomitant]
     Indication: PRODUCT USED FOR UNKNOWN INDICATION
  8. MATZIM LA [Concomitant]
     Indication: PRODUCT USED FOR UNKNOWN INDICATION

REACTIONS (8)
  - LOCALISED INFECTION [None]
  - ARTHRALGIA [None]
  - INJECTION SITE PAIN [None]
  - FATIGUE [None]
  - BRONCHITIS [None]
  - ARTHRODESIS [None]
  - INJECTION SITE HAEMATOMA [None]
  - TOE AMPUTATION [None]
